FAERS Safety Report 19308733 (Version 1)
Quarter: 2021Q2

REPORT INFORMATION
  Report Type: Spontaneous
  Country: US (occurrence: US)
  Receive Date: 20210526
  Receipt Date: 20210526
  Transmission Date: 20210717
  Serious: Yes (Death)
  Sender: FDA-Public Use
  Company Number: None

PATIENT
  Age: 10 Year
  Sex: Female

DRUGS (1)
  1. SULFAMETHOXAZOLE/TRIMETHOPRIM [Suspect]
     Active Substance: SULFAMETHOXAZOLE\TRIMETHOPRIM
     Indication: FOLLICULITIS
     Route: 048

REACTIONS (10)
  - Chest pain [None]
  - Dyspnoea [None]
  - Pyrexia [None]
  - Fatigue [None]
  - Dizziness [None]
  - Alveolar lung disease [None]
  - Haemorrhagic disorder [None]
  - Headache [None]
  - Pharyngitis [None]
  - Cough [None]

NARRATIVE: CASE EVENT DATE: 20180501
